FAERS Safety Report 7358065-3 (Version None)
Quarter: 2011Q1

REPORT INFORMATION
  Report Type: 
  Country: None (occurrence: None)
  Receive Date: 20110317
  Receipt Date: 20110303
  Transmission Date: 20110831
  Serious: Yes (Other)
  Sender: FDA-Public Use
  Company Number: PHHY2010US78375

PATIENT
  Sex: Female
  Weight: 68.6 kg

DRUGS (4)
  1. KEPPRA [Concomitant]
     Dosage: UNK
     Route: 048
  2. INDERAL [Concomitant]
     Dosage: UNK
     Route: 048
  3. SIMVASTATIN [Concomitant]
     Dosage: UNK
     Route: 048
  4. RECLAST [Suspect]
     Indication: OSTEOPENIA
     Dosage: 5 MG
     Dates: start: 20101019

REACTIONS (3)
  - CHILLS [None]
  - THYROIDITIS [None]
  - PYREXIA [None]
